FAERS Safety Report 5298402-7 (Version None)
Quarter: 2007Q2

REPORT INFORMATION
  Report Type: 
  Country: None (occurrence: None)
  Receive Date: 20070409
  Receipt Date: 20070402
  Transmission Date: 20071010
  Serious: Yes (Hospitalization)
  Sender: FDA-Public Use
  Company Number: 6031628

PATIENT
  Age: 63 Year
  Sex: Female

DRUGS (10)
  1. BISOPROLOL FUMARATE [Suspect]
     Indication: ESSENTIAL HYPERTENSION
     Dosage: 10 MG (5 MG, 2 IN 1 D) ORAL
     Route: 048
  2. PANTOZOL (TABLET) (PANTOPRAZOLE SODIUM) [Suspect]
     Indication: DUODENITIS
     Dosage: 40 MG (20 MG, 2 IN 1 D) ORAL
     Route: 048
     Dates: start: 20060913, end: 20060922
  3. PANTOZOL (TABLET) (PANTOPRAZOLE SODIUM) [Suspect]
     Indication: HELICOBACTER GASTRITIS
     Dosage: 40 MG (20 MG, 2 IN 1 D) ORAL
     Route: 048
     Dates: start: 20060913, end: 20060922
  4. PAMIDRONATE DISODIUM [Suspect]
     Indication: METASTASES TO BONE MARROW
     Dates: start: 20060301
  5. NOVALGIN (METAMIZOLE SODIUM) [Concomitant]
  6. VALORON (TILIDINE HYDROCHLORIDE) [Concomitant]
  7. METOCLOPRAMIDE [Concomitant]
  8. BAYOTENSIN (NITREDIPINE) [Concomitant]
  9. CLONIDIN-RATIOPHARM (CLONIDINE HYDROCHLORIDE) [Concomitant]
  10. LACTULOSE [Concomitant]

REACTIONS (19)
  - ABDOMINAL PAIN UPPER [None]
  - ASCITES [None]
  - BLOOD CULTURE POSITIVE [None]
  - CHOLELITHIASIS [None]
  - CHOLESTASIS [None]
  - ESCHERICHIA SEPSIS [None]
  - GENERAL PHYSICAL HEALTH DETERIORATION [None]
  - HEPATIC CYST [None]
  - HEPATOBILIARY DISEASE [None]
  - HEPATOCELLULAR DAMAGE [None]
  - HEPATOTOXICITY [None]
  - METASTASES TO LIVER [None]
  - NAUSEA [None]
  - OBSTRUCTION [None]
  - PLEURAL EFFUSION [None]
  - RENAL DISORDER [None]
  - RENAL FAILURE ACUTE [None]
  - RIB FRACTURE [None]
  - WEIGHT DECREASED [None]
